FAERS Safety Report 9486666 (Version 1)
Quarter: 2013Q3

REPORT INFORMATION
  Report Type: Spontaneous
  Country: US (occurrence: None)
  Receive Date: 20130827
  Receipt Date: 20130827
  Transmission Date: 20140515
  Serious: Yes (Death)
  Sender: FDA-Public Use
  Company Number: None

PATIENT
  Age: 83 Year
  Sex: Male
  Weight: 71.22 kg

DRUGS (12)
  1. PROZAC 10MG [Suspect]
     Indication: DEPRESSION
     Route: 048
     Dates: start: 20130613, end: 20130625
  2. PROZAC 20 MG [Suspect]
     Indication: DEPRESSION
     Route: 048
     Dates: start: 20130613, end: 20130625
  3. ENALAPRIL [Concomitant]
  4. GLIPIZIDE XL [Concomitant]
  5. DESERYL [Concomitant]
  6. TRAZADONE [Concomitant]
  7. METFORMIN [Concomitant]
  8. FISH OIL [Concomitant]
  9. VIT B [Concomitant]
  10. MULTIVITAMIN FOR SENIORS [Concomitant]
  11. TYLENOL [Concomitant]
  12. MOTRIN [Concomitant]

REACTIONS (3)
  - Gun shot wound [None]
  - Head injury [None]
  - Completed suicide [None]
